FAERS Safety Report 8251469-6 (Version None)
Quarter: 2012Q2

REPORT INFORMATION
  Report Type: 
  Country: None (occurrence: None)
  Receive Date: 20120402
  Receipt Date: 20120322
  Transmission Date: 20120825
  Serious: No
  Sender: FDA-Public Use
  Company Number: US-ASTRAZENECA-2010SE18657

PATIENT
  Age: 80 Year
  Sex: Female

DRUGS (1)
  1. TOPROL-XL [Suspect]
     Route: 048

REACTIONS (6)
  - HYPOACUSIS [None]
  - FALL [None]
  - SINUS DISORDER [None]
  - EAR CONGESTION [None]
  - ARTHRITIS [None]
  - BONE PAIN [None]
